FAERS Safety Report 24754339 (Version 2)
Quarter: 2025Q1

REPORT INFORMATION
  Report Type: Spontaneous
  Country: FR (occurrence: FR)
  Receive Date: 20241219
  Receipt Date: 20250114
  Transmission Date: 20250408
  Serious: Yes (Hospitalization, Other)
  Sender: ROCHE
  Company Number: None

PATIENT
  Age: 41 Year
  Sex: Female
  Weight: 70 kg

DRUGS (6)
  1. KADCYLA [Suspect]
     Active Substance: ADO-TRASTUZUMAB EMTANSINE
     Indication: Breast cancer metastatic
     Route: 042
     Dates: start: 2016, end: 202312
  2. XELODA [Suspect]
     Active Substance: CAPECITABINE
     Indication: Breast cancer metastatic
     Dosage: 500 MG 2FOIS PAR J
     Route: 050
     Dates: start: 202312
  3. HERCEPTIN [Suspect]
     Active Substance: TRASTUZUMAB
     Indication: Breast cancer metastatic
     Dosage: HERCEPTIN (TRASTUZUMAB SC) X 3 INJ/WEEK, SINCE 12/2023
     Route: 058
     Dates: start: 202312
  4. HERCEPTIN [Suspect]
     Active Substance: TRASTUZUMAB
     Dosage: TRASTUZUMAB SC X 1 INJ/3 WEEKS
     Route: 058
  5. TUKYSA [Suspect]
     Active Substance: TUCATINIB
     Indication: Breast cancer metastatic
     Dosage: 600 MG/D. 1FP. TUCATINIB PO 150 MG 2 TAB X 2/D
     Route: 048
     Dates: start: 202312, end: 20240418
  6. ESOMEPRAZOLE [Suspect]
     Active Substance: ESOMEPRAZOLE
     Indication: Product used for unknown indication
     Dosage: ESOMEPRAZOLE 40 MG PO X 1 CAPSULE/D
     Route: 048

REACTIONS (4)
  - Hepatopulmonary syndrome [Recovering/Resolving]
  - Nodular regenerative hyperplasia [Recovering/Resolving]
  - Thrombocytopenia [Unknown]
  - Hepatic cirrhosis [Recovering/Resolving]

NARRATIVE: CASE EVENT DATE: 20231201
